FAERS Safety Report 7341884-7 (Version None)
Quarter: 2011Q1

REPORT INFORMATION
  Report Type: 
  Country: None (occurrence: None)
  Receive Date: 20110309
  Receipt Date: 20101210
  Transmission Date: 20110831
  Serious: No
  Sender: FDA-Public Use
  Company Number: US-BAYER-2011-005403

PATIENT
  Sex: Female
  Weight: 50 kg

DRUGS (2)
  1. OMEPRAZOLE [Concomitant]
     Indication: DYSPEPSIA
  2. ALEVE (CAPLET) [Suspect]
     Indication: HEADACHE
     Dosage: UNK
     Dates: start: 20101208, end: 20101209

REACTIONS (3)
  - MEDICATION ERROR [None]
  - VOMITING [None]
  - DRUG INEFFECTIVE [None]
